FAERS Safety Report 8228825-5 (Version None)
Quarter: 2012Q1

REPORT INFORMATION
  Report Type: 
  Country: None (occurrence: None)
  Receive Date: 20120322
  Receipt Date: 20120312
  Transmission Date: 20120608
  Serious: Yes (Death, Hospitalization)
  Sender: FDA-Public Use
  Company Number: FR-GLAXOSMITHKLINE-B0782593A

PATIENT
  Sex: Female

DRUGS (14)
  1. ZYVOX [Suspect]
     Indication: PRODUCT USED FOR UNKNOWN INDICATION
     Route: 065
     Dates: start: 20111230
  2. VALACYCLOVIR HYDROCHLORIDE [Suspect]
     Indication: PRODUCT USED FOR UNKNOWN INDICATION
     Route: 065
     Dates: start: 20111228
  3. LEVOFLOXACIN [Suspect]
     Indication: PRODUCT USED FOR UNKNOWN INDICATION
     Route: 065
     Dates: start: 20111229
  4. VANCOMYCIN [Suspect]
     Indication: PRODUCT USED FOR UNKNOWN INDICATION
     Route: 065
     Dates: start: 20120105
  5. AMIODARONE HYDROCHLORIDE [Suspect]
     Indication: PRODUCT USED FOR UNKNOWN INDICATION
     Route: 042
     Dates: start: 20111230
  6. HYDREA [Suspect]
     Indication: ACUTE LEUKAEMIA
     Route: 065
     Dates: start: 20111226, end: 20111228
  7. METOCLOPRAMIDE [Concomitant]
  8. IDARUBICIN HCL [Suspect]
     Indication: ACUTE LEUKAEMIA
     Route: 065
     Dates: start: 20111228
  9. RASBURICASE [Suspect]
     Indication: PRODUCT USED FOR UNKNOWN INDICATION
     Route: 065
     Dates: start: 20111228
  10. NOXAFIL [Concomitant]
  11. PIPERACILLIN AND TAZOBACTAM [Suspect]
     Indication: PRODUCT USED FOR UNKNOWN INDICATION
     Route: 065
     Dates: start: 20111228, end: 20120104
  12. ZOFRAN [Concomitant]
  13. CYTARABINE [Suspect]
     Indication: ACUTE LEUKAEMIA
     Route: 042
     Dates: start: 20111228, end: 20120103
  14. EMEND [Suspect]
     Indication: PRODUCT USED FOR UNKNOWN INDICATION
     Route: 065
     Dates: start: 20111229

REACTIONS (14)
  - RENAL FAILURE ACUTE [None]
  - DEHYDRATION [None]
  - SKIN DISORDER [None]
  - SEPTIC SHOCK [None]
  - DERMATITIS BULLOUS [None]
  - APLASIA [None]
  - HYPOTENSION [None]
  - HEPATOCELLULAR INJURY [None]
  - LACTIC ACIDOSIS [None]
  - INTESTINAL ISCHAEMIA [None]
  - MELAENA [None]
  - MULTI-ORGAN FAILURE [None]
  - TACHYCARDIA [None]
  - GASTROINTESTINAL NECROSIS [None]
